FAERS Safety Report 24210979 (Version 1)
Quarter: 2024Q3

REPORT INFORMATION
  Report Type: Spontaneous
  Country: US (occurrence: US)
  Receive Date: 20240814
  Receipt Date: 20240814
  Transmission Date: 20241017
  Serious: Yes (Other)
  Sender: NOVO NORDISK
  Company Number: US-NOVOPROD-1268746

PATIENT
  Sex: Male

DRUGS (1)
  1. OZEMPIC [Suspect]
     Active Substance: SEMAGLUTIDE
     Indication: Type 2 diabetes mellitus
     Dosage: UNK
     Route: 058

REACTIONS (4)
  - Attention deficit hyperactivity disorder [Unknown]
  - Condition aggravated [Unknown]
  - Amnesia [Unknown]
  - Condition aggravated [Unknown]
